FAERS Safety Report 6361870-3 (Version None)
Quarter: 2009Q3

REPORT INFORMATION
  Report Type: 
  Country: None (occurrence: None)
  Receive Date: 20090821
  Receipt Date: 20090717
  Transmission Date: 20100115
  Serious: No
  Sender: FDA-Public Use
  Company Number: 8049271

PATIENT
  Age: 76 Year
  Sex: Female
  Weight: 75.2 kg

DRUGS (9)
  1. CIMZIA [Suspect]
     Indication: CROHN'S DISEASE
     Dosage: 400 MG SC
     Route: 058
     Dates: start: 20090326
  2. DITHEN ATROP [Concomitant]
  3. AZATHIOPRINE [Concomitant]
  4. ATENOLOL [Concomitant]
  5. NEXIUM [Concomitant]
  6. INSPRA [Concomitant]
  7. GABAPENTIN [Concomitant]
  8. MICARDIS HCT [Concomitant]
  9. SYNTHROID [Concomitant]

REACTIONS (1)
  - PRURITUS GENERALISED [None]
